FAERS Safety Report 5241855-0 (Version None)
Quarter: 2007Q1

REPORT INFORMATION
  Report Type: 
  Country: None (occurrence: None)
  Receive Date: 20070212
  Receipt Date: 20070202
  Transmission Date: 20070707
  Serious: Yes (Death, Hospitalization)
  Sender: FDA-Public Use
  Company Number: A-US2007-14171

PATIENT
  Age: 75 Year
  Sex: Male
  Weight: 95.5 kg

DRUGS (3)
  1. VENTAVIS [Suspect]
     Indication: PULMONARY HYPERTENSION
     Dosage: 5 UG, SINGLE, RESPIRATORY; 2.5 UG SINGLE, RESPIRATORY
     Route: 055
     Dates: start: 20070117, end: 20070117
  2. VENTAVIS [Suspect]
     Indication: PULMONARY HYPERTENSION
     Dosage: 5 UG, SINGLE, RESPIRATORY; 2.5 UG SINGLE, RESPIRATORY
     Route: 055
     Dates: start: 20070117, end: 20070117
  3. OXYGEN (OXYGEN) [Concomitant]

REACTIONS (4)
  - CARDIO-RESPIRATORY ARREST [None]
  - CONDITION AGGRAVATED [None]
  - LOSS OF CONSCIOUSNESS [None]
  - PULMONARY HYPERTENSION [None]
